FAERS Safety Report 6954725-4 (Version None)
Quarter: 2010Q3

REPORT INFORMATION
  Report Type: 
  Country: None (occurrence: None)
  Receive Date: 20100829
  Receipt Date: 20100524
  Transmission Date: 20110219
  Serious: No
  Sender: FDA-Public Use
  Company Number: US-ALLERGAN-1006748US

PATIENT
  Age: 75 Year
  Sex: Female

DRUGS (7)
  1. FML [Suspect]
     Indication: CONJUNCTIVITIS ALLERGIC
     Dosage: 1 GTT, BID
     Route: 047
  2. CLARITIN [Concomitant]
  3. LEXAPRO [Concomitant]
  4. ARICEPT [Concomitant]
  5. LIPITOR [Concomitant]
  6. LISINOPRIL [Concomitant]
  7. INSULIN [Concomitant]

REACTIONS (1)
  - HYPERGLYCAEMIA [None]
